FAERS Safety Report 15906488 (Version 1)
Quarter: 2019Q1

REPORT INFORMATION
  Report Type: Spontaneous
  Country: US (occurrence: US)
  Receive Date: 20190111
  Receipt Date: 20190111
  Transmission Date: 20190417
  Serious: Yes (Hospitalization)
  Sender: FDA-Public Use
  Company Number: None

PATIENT
  Age: 19 Year
  Sex: Female

DRUGS (10)
  1. SODIUM CHLORIDE 7% [Suspect]
     Active Substance: SODIUM CHLORIDE
     Indication: CYSTIC FIBROSIS
     Dosage: ?          OTHER ROUTE:ORAL NEBULIZED?
     Dates: start: 20140324
  2. AZITHROMYCIN ANHYDROUS. [Concomitant]
     Active Substance: AZITHROMYCIN ANHYDROUS
  3. SYMBICORT [Concomitant]
     Active Substance: BUDESONIDE\FORMOTEROL FUMARATE DIHYDRATE
  4. CREON [Concomitant]
     Active Substance: PANCRELIPASE AMYLASE\PANCRELIPASE LIPASE\PANCRELIPASE PROTEASE
  5. VENTOLIN [Concomitant]
     Active Substance: ALBUTEROL SULFATE
  6. ZINC. [Concomitant]
     Active Substance: ZINC
  7. COMPLETE FORM D3000 [Concomitant]
  8. CAYSTON [Concomitant]
     Active Substance: AZTREONAM
  9. CAYSTON [Suspect]
     Active Substance: AZTREONAM
  10. RANITIDINE. [Concomitant]
     Active Substance: RANITIDINE

REACTIONS (4)
  - Cough [None]
  - Cystic fibrosis [None]
  - Disease complication [None]
  - Respiratory disorder [None]

NARRATIVE: CASE EVENT DATE: 201901
